FAERS Safety Report 7739708-9 (Version None)
Quarter: 2011Q3

REPORT INFORMATION
  Report Type: 
  Country: None (occurrence: None)
  Receive Date: 20110909
  Receipt Date: 20110831
  Transmission Date: 20111222
  Serious: Yes (Other)
  Sender: FDA-Public Use
  Company Number: JP-B.I. PHARMACEUTICALS,INC./RIDGEFIELD-2011-BP-17749NB

PATIENT
  Age: 77 Year
  Sex: Male

DRUGS (3)
  1. PRADAXA [Suspect]
     Dosage: 220 MG
     Route: 048
     Dates: start: 20110526, end: 20110601
  2. CARTEOLOL HYDROCHLORIDE [Concomitant]
     Dosage: 10 MG
     Route: 048
  3. LANSOPRAZOLE [Concomitant]
     Route: 048
     Dates: start: 20110623

REACTIONS (4)
  - TUMOUR FLARE [None]
  - DIARRHOEA [None]
  - DECREASED APPETITE [None]
  - NAUSEA [None]
